FAERS Safety Report 9929492 (Version 1)
Quarter: 2014Q1

REPORT INFORMATION
  Report Type: Spontaneous
  Country: JP (occurrence: JP)
  Receive Date: 20140227
  Receipt Date: 20140227
  Transmission Date: 20141002
  Serious: Yes (Death, Hospitalization)
  Sender: FDA-Public Use
  Company Number: PHHY2014JP021299

PATIENT
  Age: 68 Year
  Sex: Female

DRUGS (3)
  1. DOXORUBICIN [Suspect]
     Indication: CHEMOTHERAPY
     Dosage: 50 MG/M2, UNK
  2. 5-FLUOROURACIL [Suspect]
     Indication: CHEMOTHERAPY
     Dosage: 500 MG/M2, UNK
  3. CYCLOPHOSPHAMIDE [Suspect]
     Indication: CHEMOTHERAPY
     Dosage: 500 MG/M2

REACTIONS (7)
  - Hepatic failure [Fatal]
  - Hepatic function abnormal [Fatal]
  - Transaminases increased [Fatal]
  - Hepatitis B [Unknown]
  - Decreased appetite [Unknown]
  - Pyrexia [Unknown]
  - Vertigo [Unknown]
